FAERS Safety Report 9947480 (Version 1)
Quarter: 2014Q1

REPORT INFORMATION
  Report Type: Report from Study
  Country: US (occurrence: US)
  Receive Date: 20140303
  Receipt Date: 20140303
  Transmission Date: 20141002
  Serious: No
  Sender: FDA-Public Use
  Company Number: US-ABBVIE-13P-163-1059837-00

PATIENT
  Age: 42 Year
  Sex: Female

DRUGS (6)
  1. HUMIRA [Suspect]
     Indication: PSORIATIC ARTHROPATHY
     Route: 058
     Dates: start: 20130214
  2. HUMIRA [Suspect]
     Indication: PSORIASIS
  3. AMITRIPTYLINE [Concomitant]
     Indication: NERVOUSNESS
     Dosage: 50 MG DAILY
  4. DIAZEPAM [Concomitant]
     Indication: INSOMNIA
  5. TRAMADOL [Concomitant]
     Indication: PSORIATIC ARTHROPATHY
     Route: 048
  6. TRAMADOL [Concomitant]
     Indication: PAIN

REACTIONS (2)
  - Rash erythematous [Not Recovered/Not Resolved]
  - Rash erythematous [Not Recovered/Not Resolved]
